FAERS Safety Report 19569513 (Version 1)
Quarter: 2021Q3

REPORT INFORMATION
  Report Type: Spontaneous
  Country: US (occurrence: US)
  Receive Date: 20210716
  Receipt Date: 20210716
  Transmission Date: 20211014
  Serious: Yes (Hospitalization)
  Sender: FDA-Public Use
  Company Number: US-CELGENEUS-USA-20210702659

PATIENT
  Age: 84 Year
  Sex: Female
  Weight: 82.63 kg

DRUGS (2)
  1. REVLIMID [Suspect]
     Active Substance: LENALIDOMIDE
     Dosage: 15 MILLIGRAM
     Route: 048
     Dates: start: 201912
  2. REVLIMID [Suspect]
     Active Substance: LENALIDOMIDE
     Indication: LYMPHOMA
     Dosage: 20 MILLIGRAM
     Route: 048
     Dates: start: 20190426

REACTIONS (3)
  - Cardiac failure congestive [Recovering/Resolving]
  - Unevaluable event [Recovering/Resolving]
  - Constipation [Recovering/Resolving]

NARRATIVE: CASE EVENT DATE: 20210618
